FAERS Safety Report 5010698-5 (Version None)
Quarter: 2006Q2

REPORT INFORMATION
  Report Type: 
  Country: None (occurrence: None)
  Receive Date: 20060525
  Receipt Date: 20060503
  Transmission Date: 20061013
  Serious: Yes (Hospitalization)
  Sender: FDA-Public Use
  Company Number: PHEH2006US05847

PATIENT
  Age: 66 Year
  Sex: Male
  Weight: 95.238 kg

DRUGS (11)
  1. EXJADE [Suspect]
     Indication: BLOOD IRON INCREASED
     Dosage: 20 MG/KG
     Route: 048
     Dates: start: 20060208, end: 20060308
  2. PRILOSEC [Concomitant]
     Indication: GASTROOESOPHAGEAL REFLUX DISEASE
     Dosage: 20 MG, QD
     Route: 048
  3. NORVASC [Concomitant]
     Indication: HYPERTENSION
     Dosage: 10 MG, QD
     Route: 048
  4. GLIMEPIRIDE [Concomitant]
     Indication: DIABETES MELLITUS
     Dosage: 2 MG, QD
     Route: 048
  5. FLOMAX [Concomitant]
     Indication: BENIGN PROSTATIC HYPERPLASIA
     Dosage: 0.4 MG, QD
     Route: 048
  6. LISINOPRIL [Concomitant]
     Indication: HYPERTENSION
     Dosage: 2.5 MG, QD
     Route: 048
  7. GLUCOPHAGE [Concomitant]
     Indication: DIABETES MELLITUS
     Dosage: 500 MG, Q12H
     Route: 048
  8. LIPITOR [Concomitant]
     Indication: HYPERLIPIDAEMIA
     Dosage: 20 MG, QD
     Route: 048
  9. FOLIC ACID [Concomitant]
     Indication: ANAEMIA
     Dosage: 1 MG, QD
     Route: 048
  10. COUMADIN [Concomitant]
     Indication: INTRAVENOUS CATHETER MANAGEMENT
     Dosage: 1 MG, QD
     Route: 048
  11. REVLIMID [Concomitant]
     Indication: MYELODYSPLASTIC SYNDROME
     Dosage: 5 MG, QD
     Route: 048
     Dates: start: 20060208, end: 20060403

REACTIONS (5)
  - ANAPHYLACTIC REACTION [None]
  - CHILLS [None]
  - HYPOXIA [None]
  - PYREXIA [None]
  - RASH [None]
